FAERS Safety Report 18997685 (Version 2)
Quarter: 2025Q1

REPORT INFORMATION
  Report Type: Report from Study
  Country: US (occurrence: US)
  Receive Date: 20210311
  Receipt Date: 20250317
  Transmission Date: 20250408
  Serious: Yes (Hospitalization, Other)
  Sender: TAKEDA
  Company Number: US-TAKEDA-2021TUS014442

PATIENT
  Age: 40 Year
  Sex: Female

DRUGS (5)
  1. TEDUGLUTIDE [Suspect]
     Active Substance: TEDUGLUTIDE
     Indication: Short-bowel syndrome
     Dosage: 2.7 MILLIGRAM, QD
  2. TEDUGLUTIDE [Suspect]
     Active Substance: TEDUGLUTIDE
     Indication: Crohn^s disease
     Dosage: 0.25 MILLILITER, QD
     Dates: start: 201701
  3. TEDUGLUTIDE [Suspect]
     Active Substance: TEDUGLUTIDE
  4. TEDUGLUTIDE [Suspect]
     Active Substance: TEDUGLUTIDE
  5. STELARA [Concomitant]
     Active Substance: USTEKINUMAB

REACTIONS (6)
  - Clostridium difficile infection [Unknown]
  - Malnutrition [Unknown]
  - Rash pruritic [Unknown]
  - Gastroenteritis viral [Recovering/Resolving]
  - Product use in unapproved indication [Unknown]
  - Oedema [Unknown]

NARRATIVE: CASE EVENT DATE: 20170101
